FAERS Safety Report 23173462 (Version 1)
Quarter: 2023Q4

REPORT INFORMATION
  Report Type: Spontaneous
  Country: TH (occurrence: TH)
  Receive Date: 20231111
  Receipt Date: 20231111
  Transmission Date: 20240110
  Serious: Yes (Other)
  Sender: FDA-Public Use
  Company Number: TH-CADILA HEALTHCARE LIMITED-TH-ZYDUS-100126

PATIENT

DRUGS (5)
  1. ACETAMINOPHEN\TRAMADOL HYDROCHLORIDE [Interacting]
     Active Substance: ACETAMINOPHEN\TRAMADOL HYDROCHLORIDE
     Indication: Fibromyalgia
     Dosage: UNK 37.5 MG/325 MG COMBINATION
     Route: 048
  2. ETORICOXIB [Interacting]
     Active Substance: ETORICOXIB
     Indication: Fibromyalgia
     Dosage: UNK
     Route: 065
  3. EPERISONE [Interacting]
     Active Substance: EPERISONE
     Indication: Fibromyalgia
     Dosage: UNK
     Route: 065
  4. LORAZEPAM [Concomitant]
     Active Substance: LORAZEPAM
     Indication: Insomnia
     Dosage: 0.5 MILLIGRAM
     Route: 065
  5. METHYLPHENIDATE [Concomitant]
     Active Substance: METHYLPHENIDATE
     Indication: Attention deficit hyperactivity disorder
     Dosage: 10 MILLIGRAM PER DAY, AS NEEDED
     Route: 065

REACTIONS (2)
  - Depersonalisation/derealisation disorder [Recovered/Resolved]
  - Drug interaction [Unknown]
